FAERS Safety Report 4793453-0 (Version None)
Quarter: 2005Q4

REPORT INFORMATION
  Report Type: 
  Country: None (occurrence: None)
  Receive Date: 20051011
  Receipt Date: 20050228
  Transmission Date: 20060501
  Serious: No
  Sender: FDA-Public Use
  Company Number: US-BRISTOL-MYERS SQUIBB COMPANY-12878476

PATIENT
  Age: 44 Year
  Sex: Female

DRUGS (8)
  1. GLUCOPHAGE XR [Suspect]
     Indication: DIABETES MELLITUS
     Route: 048
  2. CLONAZEPAM [Concomitant]
  3. CELEXA [Concomitant]
  4. DEPAKOTE [Concomitant]
  5. LISINOPRIL [Concomitant]
  6. HYDROCHLOROTHIAZIDE [Concomitant]
  7. ALLEGRA [Concomitant]
  8. LOPRESSOR [Concomitant]

REACTIONS (1)
  - DIARRHOEA [None]
